FAERS Safety Report 18767317 (Version 1)
Quarter: 2021Q1

REPORT INFORMATION
  Report Type: Spontaneous
  Country: PT (occurrence: PT)
  Receive Date: 20210121
  Receipt Date: 20210121
  Transmission Date: 20210419
  Serious: Yes (Life-Threatening, Hospitalization, Other)
  Sender: FDA-Public Use
  Company Number: PT-GLAXOSMITHKLINE-PT2021010610

PATIENT
  Age: 41 Year
  Sex: Female

DRUGS (4)
  1. POTASSIUM IODIDE. [Concomitant]
     Active Substance: POTASSIUM IODIDE
     Indication: PRODUCT USED FOR UNKNOWN INDICATION
     Dosage: UNK
     Route: 065
  2. FOLIFER [Concomitant]
     Indication: PRODUCT USED FOR UNKNOWN INDICATION
     Dosage: UNK
     Route: 065
  3. VOLTAREN RAPID [Suspect]
     Active Substance: DICLOFENAC POTASSIUM
     Indication: HAEMORRHOIDS
     Dosage: 150 MG,QD (1 COMP. 8 EM 8 HORAS) COMPRIMIDO REVESTIDO
     Route: 048
     Dates: start: 20201212, end: 20201214
  4. FAKTU [Concomitant]
     Indication: PRODUCT USED FOR UNKNOWN INDICATION
     Dosage: UNK
     Route: 065

REACTIONS (3)
  - Contraindicated product prescribed [Unknown]
  - Precipitate labour [Unknown]
  - Tachycardia foetal [Recovering/Resolving]

NARRATIVE: CASE EVENT DATE: 20201212
